FAERS Safety Report 7988412-0 (Version None)
Quarter: 2011Q4

REPORT INFORMATION
  Report Type: 
  Country: None (occurrence: None)
  Receive Date: 20111216
  Receipt Date: 20111215
  Transmission Date: 20120403
  Serious: Yes (Other)
  Sender: FDA-Public Use
  Company Number: US-ROCHE-792577

PATIENT
  Sex: Female
  Weight: 52.21 kg

DRUGS (2)
  1. ACCUTANE [Suspect]
     Indication: PRODUCT USED FOR UNKNOWN INDICATION
     Route: 065
     Dates: start: 19940101, end: 19951231
  2. ASACOL [Concomitant]

REACTIONS (6)
  - CROHN'S DISEASE [None]
  - INFLAMMATORY BOWEL DISEASE [None]
  - INTESTINAL HAEMORRHAGE [None]
  - DEPRESSION [None]
  - IRRITABLE BOWEL SYNDROME [None]
  - INTESTINAL OBSTRUCTION [None]
